FAERS Safety Report 17083176 (Version 2)
Quarter: 2019Q4

REPORT INFORMATION
  Report Type: Spontaneous
  Country: DE (occurrence: DE)
  Receive Date: 20191127
  Receipt Date: 20191202
  Transmission Date: 20200122
  Serious: Yes (Hospitalization)
  Sender: FDA-Public Use
  Company Number: DE-MYLANLABS-2019M1115231

PATIENT
  Age: 88 Year
  Sex: Male

DRUGS (14)
  1. ASPIRIN. [Concomitant]
     Active Substance: ASPIRIN
     Dosage: 100 MILLIGRAM, QD ( 0-1-0-0)
  2. RANEXA [Concomitant]
     Active Substance: RANOLAZINE
     Dosage: 375 MILLIGRAM, QD (1-0-0-0)
  3. FENTANYL. [Suspect]
     Active Substance: FENTANYL
     Indication: PRODUCT USED FOR UNKNOWN INDICATION
     Dosage: 50 MICROGRAM (DISCONTINUED ON 03-JUL-2017, PATCH TRANSDERMAL)
     Dates: end: 20170703
  4. NALOXONE W/TILIDINE [Suspect]
     Active Substance: NALOXONE HYDROCHLORIDE\TILIDINE HYDROCHLORIDE
     Indication: PRODUCT USED FOR UNKNOWN INDICATION
     Dosage: 200|16  MG, 1-0-1-0 (SCHEDULED ON 04-JUL-2017)
  5. PROCORALAN [Suspect]
     Active Substance: IVABRADINE
     Indication: PRODUCT USED FOR UNKNOWN INDICATION
     Dosage: 5 MILLIGRAM, BID (1-0-1-0)
  6. PANTOPRAZOL                        /01263201/ [Concomitant]
     Active Substance: PANTOPRAZOLE
     Dosage: 40 MILLIGRAM, QD ( 0-0-1-0)
  7. CLOPIDOGREL [Concomitant]
     Active Substance: CLOPIDOGREL BISULFATE
     Dosage: 75 MILLIGRAM, QD (1-0-0-0)
  8. CARVEDILOL. [Concomitant]
     Active Substance: CARVEDILOL
     Dosage: 25 MILLIGRAM (0.5-0-0.5-0)
  9. IRON [Concomitant]
     Active Substance: IRON
     Dosage: NK MG, 1-0-0-0
  10. ATORVASTATIN [Concomitant]
     Active Substance: ATORVASTATIN
     Dosage: 40 MILLIGRAM, QD ( 0-0-1-0)
  11. NITRENDIPIN [Concomitant]
     Active Substance: NITRENDIPINE
     Dosage: 10 MILLIGRAM, QD (0-0-1-0)
  12. RANITIDIN [Concomitant]
     Active Substance: RANITIDINE HYDROCHLORIDE
     Dosage: 300 MILLIGRAM, QD  (1-0-0-0)
  13. TAMSULOSIN [Concomitant]
     Active Substance: TAMSULOSIN
     Dosage: 0.4 MILLIGRAM, QD ( 0-0-1-0)
  14. RAMIPRIL. [Concomitant]
     Active Substance: RAMIPRIL
     Dosage: 2.5 MILLIGRAM, QD (1-0-0-0)

REACTIONS (4)
  - Product prescribing error [Unknown]
  - Chest discomfort [Unknown]
  - Dizziness [Unknown]
  - Palpitations [Unknown]
